FAERS Safety Report 15682948 (Version 2)
Quarter: 2019Q2

REPORT INFORMATION
  Report Type: Spontaneous
  Country: US (occurrence: US)
  Receive Date: 20181203
  Receipt Date: 20190620
  Transmission Date: 20190711
  Serious: No
  Sender: FDA-Public Use
  Company Number: US-MYLANLABS-2018M1087749

PATIENT
  Sex: Female
  Weight: 79 kg

DRUGS (1)
  1. ESTRADIOL TRANSDERMAL SYSTEM [Suspect]
     Active Substance: ESTRADIOL
     Indication: HYSTERECTOMY
     Dosage: 1 MILLIGRAM
     Route: 062
     Dates: start: 2017

REACTIONS (3)
  - Expired product administered [Not Recovered/Not Resolved]
  - Product physical issue [Not Recovered/Not Resolved]
  - Product adhesion issue [Unknown]
